FAERS Safety Report 21987317 (Version 1)
Quarter: 2023Q1

REPORT INFORMATION
  Report Type: Report from Study
  Country: CO (occurrence: CO)
  Receive Date: 20230214
  Receipt Date: 20230214
  Transmission Date: 20230418
  Serious: Yes (Other)
  Sender: FDA-Public Use
  Company Number: CO-ABBVIE-4305697

PATIENT
  Age: 17 Year
  Sex: Female

DRUGS (1)
  1. HUMIRA [Suspect]
     Active Substance: ADALIMUMAB
     Indication: Uveitis
     Route: 058
     Dates: start: 20220423, end: 20221015

REACTIONS (3)
  - Iris adhesions [Unknown]
  - Weight decreased [Unknown]
  - Lenticular opacities [Unknown]

NARRATIVE: CASE EVENT DATE: 20230117
